FAERS Safety Report 7813204-2 (Version None)
Quarter: 2011Q4

REPORT INFORMATION
  Report Type: 
  Country: None (occurrence: None)
  Receive Date: 20111013
  Receipt Date: 20111004
  Transmission Date: 20120403
  Serious: Yes (Hospitalization, Other)
  Sender: FDA-Public Use
  Company Number: US-ASTRAZENECA-2011SE31193

PATIENT
  Age: 84 Year
  Sex: Female
  Weight: 103 kg

DRUGS (3)
  1. EFFIENT [Suspect]
     Route: 065
  2. PLAVIX [Interacting]
     Route: 065
  3. NEXIUM [Interacting]
     Route: 048

REACTIONS (6)
  - DRUG INTOLERANCE [None]
  - DRUG THERAPY CHANGED [None]
  - GASTROOESOPHAGEAL REFLUX DISEASE [None]
  - DIARRHOEA [None]
  - MYOCARDIAL INFARCTION [None]
  - DRUG INTERACTION [None]
